FAERS Safety Report 10213628 (Version 1)
Quarter: 2014Q2

REPORT INFORMATION
  Report Type: Spontaneous
  Country: JP (occurrence: None)
  Receive Date: 20140530
  Receipt Date: 20140530
  Transmission Date: 20141212
  Serious: Yes (Death)
  Sender: FDA-Public Use
  Company Number: HRA-MET20140012

PATIENT
  Age: 74 Year
  Sex: Male

DRUGS (2)
  1. METOPIRONE [Suspect]
     Indication: CUSHING^S SYNDROME
     Route: 048
  2. DEXAMETHASONE SODIUM PHOSPHATE [Concomitant]

REACTIONS (5)
  - Disseminated cryptococcosis [None]
  - Acute respiratory distress syndrome [None]
  - General physical health deterioration [None]
  - Cushing^s syndrome [None]
  - Condition aggravated [None]
